FAERS Safety Report 4478165-5 (Version None)
Quarter: 2004Q4

REPORT INFORMATION
  Report Type: 
  Country: None (occurrence: None)
  Receive Date: 20041019
  Receipt Date: 20041011
  Transmission Date: 20050328
  Serious: Yes (Death)
  Sender: FDA-Public Use
  Company Number: US-JNJFOC-20041003698

PATIENT
  Sex: Male
  Weight: 98.43 kg

DRUGS (10)
  1. REMICADE [Suspect]
     Indication: RHEUMATOID ARTHRITIS
     Route: 042
  2. NEXIUM [Concomitant]
  3. ALLEGRA [Concomitant]
  4. AVALIDE [Concomitant]
  5. AVALIDE [Concomitant]
  6. PREDNISONE TAB [Concomitant]
  7. CRYSTALOSE [Concomitant]
  8. CHEMOTHERAPY [Concomitant]
  9. THALIDOMIDE [Concomitant]
  10. FLONASE [Concomitant]

REACTIONS (1)
  - HEPATIC NEOPLASM MALIGNANT [None]
